FAERS Safety Report 5411305-X (Version None)
Quarter: 2007Q3

REPORT INFORMATION
  Report Type: 
  Country: None (occurrence: None)
  Receive Date: 20070808
  Receipt Date: 20070727
  Transmission Date: 20080115
  Serious: Yes (Other)
  Sender: FDA-Public Use
  Company Number: CHNY2007PT02689

PATIENT
  Age: 48 Year
  Sex: Female
  Weight: 56 kg

DRUGS (4)
  1. NICOTINE [Suspect]
     Indication: SMOKING CESSATION THERAPY
     Dosage: 2 MG, CHEWED
     Dates: start: 20040308, end: 20060301
  2. NICOTINE [Suspect]
     Indication: SMOKING CESSATION THERAPY
     Dosage: TRANSDERMAL
     Route: 062
     Dates: start: 20070602, end: 20070609
  3. NICORETTE [Suspect]
     Indication: SMOKING CESSATION THERAPY
     Dosage: 20 TO 25 PIECES DAILY, CHEWED; 12 TO 14 PIECES DAILY, CHEWED
     Dates: start: 20060301, end: 20070602
  4. NICORETTE [Suspect]
     Indication: SMOKING CESSATION THERAPY
     Dosage: 20 TO 25 PIECES DAILY, CHEWED; 12 TO 14 PIECES DAILY, CHEWED
     Dates: start: 20070610

REACTIONS (3)
  - ANXIETY [None]
  - DRUG DEPENDENCE [None]
  - NICOTINE DEPENDENCE [None]
